FAERS Safety Report 25174335 (Version 1)
Quarter: 2025Q2

REPORT INFORMATION
  Report Type: Spontaneous
  Country: US (occurrence: None)
  Receive Date: 20250408
  Receipt Date: 20250408
  Transmission Date: 20250716
  Serious: No
  Sender: FDA-CTU
  Company Number: None

PATIENT
  Age: 9 Year
  Sex: Male
  Weight: 28.1 kg

DRUGS (1)
  1. ZOMACTON [Suspect]
     Active Substance: SOMATROPIN
     Indication: Growth hormone deficiency
     Dosage: 0.7 MG DAILY SUBCUTANEOUS?
     Route: 058
     Dates: start: 20250329, end: 20250331

REACTIONS (2)
  - Incorrect dose administered [None]
  - Increased dose administered [None]

NARRATIVE: CASE EVENT DATE: 20250329
